FAERS Safety Report 9913303 (Version 1)
Quarter: 2014Q1

REPORT INFORMATION
  Report Type: Spontaneous
  Country: US (occurrence: None)
  Receive Date: 20140214
  Receipt Date: 20140214
  Transmission Date: 20141002
  Serious: Yes (Disabling, Other)
  Sender: FDA-Public Use
  Company Number: SYM-2014-17435

PATIENT
  Sex: Male

DRUGS (1)
  1. EDECRIN [Suspect]
     Indication: PRODUCT USED FOR UNKNOWN INDICATION

REACTIONS (9)
  - General physical health deterioration [None]
  - Asthenia [None]
  - Decreased activity [None]
  - Ear injury [None]
  - Deafness neurosensory [None]
  - Balance disorder [None]
  - Balance disorder [None]
  - Nervous system disorder [None]
  - Quality of life decreased [None]
